FAERS Safety Report 9166440 (Version 2)
Quarter: 2013Q2

REPORT INFORMATION
  Report Type: Spontaneous
  Country: US (occurrence: US)
  Receive Date: 20130315
  Receipt Date: 20130422
  Transmission Date: 20140414
  Serious: Yes (Other)
  Sender: FDA-Public Use
  Company Number: US-FRI-1000043400

PATIENT
  Age: 35 Year
  Sex: Male

DRUGS (5)
  1. VIIBRYD [Suspect]
     Indication: STRESS
     Dosage: 10 MG
     Route: 048
     Dates: start: 201303, end: 2013
  2. VIIBRYD [Suspect]
     Indication: ANXIETY
     Dosage: 20 MG
     Route: 048
     Dates: start: 2013, end: 2013
  3. VIIBRYD [Suspect]
     Dosage: 40 MG
     Route: 048
     Dates: start: 2013
  4. NOVOLOG [Concomitant]
     Indication: TYPE 1 DIABETES MELLITUS
  5. LISINOPRIL [Concomitant]
     Indication: HYPERTENSION

REACTIONS (4)
  - Hypoglycaemia [Unknown]
  - Diarrhoea [Recovering/Resolving]
  - Abdominal pain upper [Recovering/Resolving]
  - Off label use [Not Recovered/Not Resolved]
